FAERS Safety Report 7305582-8 (Version None)
Quarter: 2011Q1

REPORT INFORMATION
  Report Type: 
  Country: None (occurrence: None)
  Receive Date: 20110222
  Receipt Date: 20110214
  Transmission Date: 20110831
  Serious: Yes (Hospitalization, Other)
  Sender: FDA-Public Use
  Company Number: US-BAYER-200911130NA

PATIENT
  Sex: Female
  Weight: 70 kg

DRUGS (3)
  1. YAZ [Suspect]
     Indication: ORAL CONTRACEPTION
     Dosage: 1 DF (DAILY DOSE), , ORAL
     Route: 048
     Dates: end: 20081217
  2. SYNTHROID [Concomitant]
     Indication: HYPOTHYROIDISM
     Dosage: 50 ?G (DAILY DOSE), QD, ORAL
     Route: 048
  3. GLUCOPHAGE [Concomitant]
     Indication: INSULIN RESISTANCE SYNDROME
     Dosage: 2000 MG (DAILY DOSE), BID, OPHTHALMIC
     Route: 047

REACTIONS (4)
  - DYSPNOEA [None]
  - PULMONARY EMBOLISM [None]
  - CHEST PAIN [None]
  - DEEP VEIN THROMBOSIS [None]
